FAERS Safety Report 22524292 (Version 7)
Quarter: 2024Q1

REPORT INFORMATION
  Report Type: Report from Study
  Country: RO (occurrence: RO)
  Receive Date: 20230606
  Receipt Date: 20240326
  Transmission Date: 20240409
  Serious: Yes (Hospitalization, Other)
  Sender: FDA-Public Use
  Company Number: RO-AMGEN-ROUSP2023093221

PATIENT
  Age: 75 Year
  Sex: Male
  Weight: 85 kg

DRUGS (8)
  1. BEVACIZUMAB [Suspect]
     Active Substance: BEVACIZUMAB
     Indication: Hepatocellular carcinoma
     Dosage: 1200 MILLIGRAM
     Route: 065
     Dates: start: 20230330
  2. ATEZOLIZUMAB [Suspect]
     Active Substance: ATEZOLIZUMAB
     Indication: Hepatocellular carcinoma
     Dosage: 1200 MILLIGRAM, Q3WK/ ON 06/JUN/2023, START AND END DATE OF MOST RECENT DOSE 1200 MG OF ATEZOLIZUMAB
     Route: 042
     Dates: start: 20230330
  3. SILIBININ [Concomitant]
     Active Substance: SILIBININ
     Dosage: 150 MILLIGRAM, TID
     Dates: start: 20230331
  4. PROPRANOLOL [Concomitant]
     Active Substance: PROPRANOLOL HYDROCHLORIDE
     Dosage: UNK, QD
  5. FERROUS SULFATE [Concomitant]
     Active Substance: FERROUS SULFATE
     Dosage: UNK, QD
     Dates: start: 20230330
  6. SILIMARINA [Concomitant]
     Dosage: UNK
     Dates: start: 20230331
  7. URSODIOL [Concomitant]
     Active Substance: URSODIOL
     Dosage: UNK
  8. URSODIOL [Concomitant]
     Active Substance: URSODIOL
     Dosage: 250 MILLIGRAM, BID

REACTIONS (5)
  - Haemorrhoidal haemorrhage [Recovered/Resolved]
  - Anaemia [Recovered/Resolved]
  - Anaemia [Recovered/Resolved]
  - Ascites [Not Recovered/Not Resolved]
  - Bilirubin conjugated increased [Not Recovered/Not Resolved]

NARRATIVE: CASE EVENT DATE: 20230331
